FAERS Safety Report 8377578-9 (Version None)
Quarter: 2012Q2

REPORT INFORMATION
  Report Type: 
  Country: None (occurrence: None)
  Receive Date: 20120522
  Receipt Date: 20120516
  Transmission Date: 20120825
  Serious: No
  Sender: FDA-Public Use
  Company Number: US-BAYER-2012-048495

PATIENT
  Age: 51 Year
  Sex: Male
  Weight: 158.73 kg

DRUGS (1)
  1. MAGNEVIST [Suspect]
     Indication: NUCLEAR MAGNETIC RESONANCE IMAGING LIVER
     Dosage: 20 ML, ONCE
     Route: 042
     Dates: start: 20120516, end: 20120516

REACTIONS (3)
  - SNEEZING [None]
  - NASAL CONGESTION [None]
  - PRODUCTIVE COUGH [None]
